FAERS Safety Report 9726404 (Version 1)
Quarter: 2013Q4

REPORT INFORMATION
  Report Type: Spontaneous
  Country: US (occurrence: None)
  Receive Date: 20131202
  Receipt Date: 20131202
  Transmission Date: 20140711
  Serious: Yes (Hospitalization)
  Sender: FDA-Public Use
  Company Number: None

PATIENT
  Age: 47 Year
  Sex: Male
  Weight: 76.66 kg

DRUGS (3)
  1. WARFARIN [Suspect]
     Indication: DEEP VEIN THROMBOSIS
     Route: 048
  2. ACETAMINOPHEN [Suspect]
     Indication: PAIN
     Dosage: EVERY 4-6 HOURS  ORAL
     Route: 048
     Dates: start: 20131105, end: 20131111
  3. FLUOXETINE [Concomitant]

REACTIONS (3)
  - Haematoma [None]
  - Contusion [None]
  - International normalised ratio increased [None]
